FAERS Safety Report 9219816 (Version 1)
Quarter: 2013Q2

REPORT INFORMATION
  Report Type: Spontaneous
  Country: FR (occurrence: FR)
  Receive Date: 20130409
  Receipt Date: 20130409
  Transmission Date: 20140414
  Serious: Yes (Life-Threatening, Hospitalization)
  Sender: FDA-Public Use
  Company Number: FR-ROCHE-1205938

PATIENT
  Age: 75 Year
  Sex: Male

DRUGS (7)
  1. ACTILYSE [Suspect]
     Indication: ISCHAEMIC STROKE
     Dosage: INTRAVENOUS BOLUS OF 3.8 ML THEN 4 MIN OF SYRINGE PUMPS (34.4 ML/H)
     Route: 040
     Dates: start: 20110222
  2. EXFORGE [Concomitant]
     Dosage: 160 MG+ 5 MG
     Route: 048
  3. LANSOPRAZOLE [Concomitant]
     Route: 048
  4. ADENURIC [Concomitant]
     Route: 048
  5. SERETIDE [Concomitant]
     Dosage: 2 PUFFS AS REQUIRED (IH)
     Route: 065
  6. VASTAREL [Concomitant]
     Route: 048
  7. KARDEGIC [Concomitant]
     Route: 048

REACTIONS (5)
  - Anaphylactic shock [Recovered/Resolved]
  - Respiratory distress [Recovered/Resolved]
  - Bronchospasm [Recovered/Resolved]
  - Erythema [Recovered/Resolved]
  - Epilepsy [Recovered/Resolved]
